FAERS Safety Report 11409567 (Version 1)
Quarter: 2015Q3

REPORT INFORMATION
  Report Type: Spontaneous
  Country: US (occurrence: None)
  Receive Date: 20150820
  Receipt Date: 20150820
  Transmission Date: 20151125
  Serious: No
  Sender: FDA-Public Use
  Company Number: None

PATIENT
  Age: 78 Year
  Sex: Male
  Weight: 88.45 kg

DRUGS (22)
  1. SYNTHROID [Concomitant]
     Active Substance: LEVOTHYROXINE SODIUM
  2. OMEPRAZOLE. [Concomitant]
     Active Substance: OMEPRAZOLE
  3. GLUCOSAMINE [Concomitant]
     Active Substance: GLUCOSAMINE
  4. ASPIRIN. [Concomitant]
     Active Substance: ASPIRIN
  5. FINASTERID [Concomitant]
  6. LASIX [Concomitant]
     Active Substance: FUROSEMIDE
  7. VITAMIN B12 [Concomitant]
     Active Substance: CYANOCOBALAMIN
  8. CONDROITIN [Concomitant]
  9. NORVASC [Concomitant]
     Active Substance: AMLODIPINE BESYLATE
  10. CILOSTAZOL 100MG [Suspect]
     Active Substance: CILOSTAZOL
     Indication: PAIN IN EXTREMITY
     Route: 048
     Dates: start: 20150801, end: 20150819
  11. PLAVIX [Concomitant]
     Active Substance: CLOPIDOGREL BISULFATE
  12. CILOSTAZOL 100MG [Suspect]
     Active Substance: CILOSTAZOL
     Indication: INTERMITTENT CLAUDICATION
     Route: 048
     Dates: start: 20150801, end: 20150819
  13. ISOSRBIDE [Concomitant]
  14. COQ 10 [Concomitant]
     Active Substance: UBIDECARENONE
  15. MAGNESIUM [Concomitant]
     Active Substance: MAGNESIUM
  16. VITAMIN C [Concomitant]
     Active Substance: ASCORBIC ACID
  17. CARVEDILOL. [Concomitant]
     Active Substance: CARVEDILOL
  18. VITAMIN D [Concomitant]
     Active Substance: CHOLECALCIFEROL
  19. MSM [Concomitant]
     Active Substance: DIMETHYL SULFONE
  20. VITAMIN B6 [Concomitant]
     Active Substance: PYRIDOXINE HYDROCHLORIDE
  21. ZINC [Concomitant]
     Active Substance: ZINC\ZINC CHLORIDE
  22. CALCIUM [Concomitant]
     Active Substance: CALCIUM

REACTIONS (4)
  - Headache [None]
  - Nausea [None]
  - Heart rate increased [None]
  - Peripheral swelling [None]

NARRATIVE: CASE EVENT DATE: 20150813
